FAERS Safety Report 6348117-9 (Version None)
Quarter: 2009Q3

REPORT INFORMATION
  Report Type: 
  Country: None (occurrence: None)
  Receive Date: 20090910
  Receipt Date: 20090901
  Transmission Date: 20100115
  Serious: Yes (Death, Hospitalization)
  Sender: FDA-Public Use
  Company Number: TW-BAXTER-2009BH012874

PATIENT
  Sex: Male

DRUGS (5)
  1. DIANEAL [Suspect]
     Indication: PERITONEAL DIALYSIS
     Route: 033
     Dates: start: 20090801
  2. DIANEAL [Suspect]
     Route: 033
     Dates: start: 20090801
  3. DIANEAL [Suspect]
     Route: 033
     Dates: start: 20090701, end: 20090801
  4. EXTRANEAL [Suspect]
     Indication: PERITONEAL DIALYSIS
     Route: 033
     Dates: start: 20090801
  5. EXTRANEAL [Suspect]
     Route: 033
     Dates: start: 20090701, end: 20090801

REACTIONS (1)
  - PNEUMONIA [None]
